FAERS Safety Report 9227740 (Version 2)
Quarter: 2013Q2

REPORT INFORMATION
  Report Type: Spontaneous
  Country: US (occurrence: US)
  Receive Date: 20130412
  Receipt Date: 20130412
  Transmission Date: 20140414
  Serious: Yes (Other)
  Sender: FDA-Public Use
  Company Number: US-MYLANLABS-2012S1007175

PATIENT
  Age: 31 Year
  Sex: Male

DRUGS (1)
  1. DIVALPROEX SODIUM DELAYED-RELEASE TABLETS USP [Suspect]
     Indication: CONVULSION
     Route: 048
     Dates: start: 201104

REACTIONS (2)
  - Petit mal epilepsy [Not Recovered/Not Resolved]
  - Drug ineffective [Not Recovered/Not Resolved]
